FAERS Safety Report 4659603-1 (Version None)
Quarter: 2005Q2

REPORT INFORMATION
  Report Type: 
  Country: None (occurrence: None)
  Receive Date: 20050411
  Receipt Date: 20050218
  Transmission Date: 20051028
  Serious: Yes (Other)
  Sender: FDA-Public Use
  Company Number: 386018

PATIENT
  Age: 40 Year
  Sex: Male
  Weight: 96.6 kg

DRUGS (5)
  1. FUZEON [Suspect]
     Indication: HIV INFECTION
     Dosage: 2 PER DAY SUBCUTANEOUS
     Route: 058
     Dates: start: 20040621
  2. RITONAVIR (RITONAVIR) [Concomitant]
  3. TENOFOVIR (TENOFOVIR) [Concomitant]
  4. LAMIVUDINE [Concomitant]
  5. AMPRENAVIR (AMPRENAVIR) [Concomitant]

REACTIONS (2)
  - INJECTION SITE REACTION [None]
  - NODULE [None]
